FAERS Safety Report 8206056-2 (Version None)
Quarter: 2012Q1

REPORT INFORMATION
  Report Type: 
  Country: None (occurrence: None)
  Receive Date: 20120313
  Receipt Date: 20120302
  Transmission Date: 20120608
  Serious: Yes (Hospitalization)
  Sender: FDA-Public Use
  Company Number: FR-FRI-1000011010

PATIENT
  Sex: Female
  Weight: 70 kg

DRUGS (14)
  1. NAPHAZOLINE HCL [Suspect]
     Indication: NASAL CONGESTION
     Dosage: 3 DOSAGE FORM
     Route: 045
     Dates: start: 20090119, end: 20090124
  2. ACETAMINOPHEN [Concomitant]
     Dosage: 3 GRAM
     Route: 048
  3. ANTADYS [Suspect]
     Indication: DYSMENORRHOEA
     Route: 048
     Dates: end: 20090124
  4. ESCITALOPRAM [Suspect]
     Indication: DEPRESSION
     Dosage: 20 MG
     Route: 048
     Dates: start: 20090119, end: 20090124
  5. CEFUROXIME [Concomitant]
     Indication: BACTERIAL INFECTION
     Dosage: 500 MG
     Route: 048
     Dates: start: 20090119, end: 20090124
  6. RELPAX [Suspect]
     Indication: MIGRAINE
     Route: 048
     Dates: end: 20090124
  7. OXAZEPAM [Concomitant]
     Dosage: 25 MG
     Route: 048
  8. ACETAMINOPHEN [Concomitant]
     Dosage: 1500 MG
     Route: 048
  9. PROPRANOLOL [Concomitant]
     Dosage: 160 MG
     Route: 048
  10. EUPHON [Concomitant]
     Indication: COUGH
     Dosage: 45 ML
     Route: 048
     Dates: start: 20090119, end: 20090124
  11. DEPAKOTE [Concomitant]
     Dosage: 750 MG
     Route: 048
  12. CITALOPRAM HYDROBROMIDE [Concomitant]
     Dosage: 40 MG
     Route: 048
     Dates: end: 20090118
  13. HAVLANE [Concomitant]
     Dosage: 1 MG
     Route: 048
  14. TRAMADOL HCL [Concomitant]
     Dosage: 300 MG
     Route: 048

REACTIONS (2)
  - CEREBROVASCULAR ACCIDENT [None]
  - CEREBRAL VASOCONSTRICTION [None]
